FAERS Safety Report 4509619-0 (Version None)
Quarter: 2004Q4

REPORT INFORMATION
  Report Type: 
  Country: None (occurrence: None)
  Receive Date: 20041124
  Receipt Date: 20030805
  Transmission Date: 20050328
  Serious: No
  Sender: FDA-Public Use
  Company Number: US-BRISTOL-MYERS SQUIBB COMPANY-12347951

PATIENT
  Age: 76 Year
  Sex: Female
  Weight: 71 kg

DRUGS (4)
  1. AVALIDE [Suspect]
     Indication: HYPERTENSION
     Route: 048
     Dates: start: 20020801
  2. LEVOXYL [Concomitant]
  3. ZOLOFT [Concomitant]
  4. POTASSIUM SUPPLEMENT [Concomitant]

REACTIONS (1)
  - URINARY INCONTINENCE [None]
